FAERS Safety Report 11170063 (Version 1)
Quarter: 2015Q2

REPORT INFORMATION
  Report Type: Spontaneous
  Country: DE (occurrence: DE)
  Receive Date: 20150608
  Receipt Date: 20150608
  Transmission Date: 20150821
  Serious: Yes (Hospitalization, Other)
  Sender: FDA-Public Use
  Company Number: DE-ALEMBIC PHARMACEUTICALS LIMITED-2015SCAL000262

PATIENT
  Sex: Male
  Weight: 1.97 kg

DRUGS (1)
  1. QUETIAPINE FUMARATE. [Suspect]
     Active Substance: QUETIAPINE FUMARATE
     Indication: PRODUCT USED FOR UNKNOWN INDICATION
     Dosage: UNK
     Route: 064

REACTIONS (7)
  - Metabolic acidosis [Recovering/Resolving]
  - Hypotonia neonatal [Recovering/Resolving]
  - Hypokinesia neonatal [Recovering/Resolving]
  - Drug level increased [Unknown]
  - Anaemia neonatal [Recovered/Resolved]
  - Foetal exposure during pregnancy [Unknown]
  - Neonatal respiratory acidosis [Recovering/Resolving]
